FAERS Safety Report 5476780-3 (Version None)
Quarter: 2007Q4

REPORT INFORMATION
  Report Type: 
  Country: None (occurrence: None)
  Receive Date: 20071004
  Receipt Date: 20070927
  Transmission Date: 20080405
  Serious: Yes (Other)
  Sender: FDA-Public Use
  Company Number: ES-JNJFOC-20071000495

PATIENT
  Age: 36 Year
  Sex: Male

DRUGS (1)
  1. RISPERDAL [Suspect]
     Indication: PARANOIA
     Route: 048

REACTIONS (1)
  - ASTHMA [None]
